FAERS Safety Report 13915303 (Version 1)
Quarter: 2017Q3

REPORT INFORMATION
  Report Type: Spontaneous
  Country: US (occurrence: US)
  Receive Date: 20170828
  Receipt Date: 20170828
  Transmission Date: 20171127
  Serious: Yes (Life-Threatening)
  Sender: FDA-Public Use
  Company Number: None

PATIENT
  Age: 53 Year
  Sex: Male
  Weight: 96.75 kg

DRUGS (12)
  1. METOPROLOL SUCCINATE. [Concomitant]
     Active Substance: METOPROLOL SUCCINATE
  2. RIVAROXABAN [Concomitant]
     Active Substance: RIVAROXABAN
  3. KRILL OIL [Concomitant]
     Active Substance: DIETARY SUPPLEMENT
  4. NOVOLOG [Suspect]
     Active Substance: INSULIN ASPART
     Indication: TYPE 1 DIABETES MELLITUS
     Dosage: ?          QUANTITY:10 ML;OTHER ROUTE:INSULIN PUMP?
     Dates: start: 20170826, end: 20170827
  5. LISINOPRIL. [Concomitant]
     Active Substance: LISINOPRIL
  6. LYRICA [Concomitant]
     Active Substance: PREGABALIN
  7. INSULIN ASPART [Concomitant]
     Active Substance: INSULIN ASPART
  8. ROSUVASTATIN. [Concomitant]
     Active Substance: ROSUVASTATIN
  9. CILOSTAZOL. [Concomitant]
     Active Substance: CILOSTAZOL
  10. MU LTI-VITAMIN [Concomitant]
  11. LEVOTHYROXINE. [Concomitant]
     Active Substance: LEVOTHYROXINE
  12. ASPIRIN EC [Concomitant]
     Active Substance: ASPIRIN

REACTIONS (5)
  - Blood glucose increased [None]
  - Product quality issue [None]
  - Incorrect dose administered [None]
  - Diabetic ketoacidosis [None]
  - Drug ineffective [None]

NARRATIVE: CASE EVENT DATE: 20170827
